FAERS Safety Report 7005684-X (Version None)
Quarter: 2010Q3

REPORT INFORMATION
  Report Type: 
  Country: None (occurrence: None)
  Receive Date: 20100921
  Receipt Date: 20100913
  Transmission Date: 20110219
  Serious: Yes (Life-Threatening)
  Sender: FDA-Public Use
  Company Number: B0675447A

PATIENT
  Age: 29 Year
  Sex: Female
  Weight: 63 kg

DRUGS (2)
  1. SERETIDE [Suspect]
     Dosage: 1PUFF TWICE PER DAY
     Route: 055
     Dates: start: 20100816, end: 20100908
  2. SINECOD [Concomitant]
     Indication: COUGH
     Dosage: 1TAB TWICE PER DAY
     Dates: start: 20100816, end: 20100828

REACTIONS (2)
  - COUGH [None]
  - DYSPNOEA [None]
